FAERS Safety Report 13534229 (Version 1)
Quarter: 2017Q2

REPORT INFORMATION
  Report Type: Spontaneous
  Country: None (occurrence: US)
  Receive Date: 20170510
  Receipt Date: 20170510
  Transmission Date: 20170830
  Serious: No
  Sender: FDA-Public Use
  Company Number: US-SPEAR PHARMACEUTICALS-2020562

PATIENT
  Sex: Male

DRUGS (2)
  1. FOUGERA MEDICATION (REFERENCE AE ITEM # 19969) [Concomitant]
     Active Substance: UNSPECIFIED INGREDIENT
  2. FLUOROURACIL. [Suspect]
     Active Substance: FLUOROURACIL
     Indication: ACTINIC KERATOSIS
     Route: 061
     Dates: start: 20160515, end: 20160526

REACTIONS (2)
  - Application site erythema [Recovered/Resolved]
  - Application site swelling [None]

NARRATIVE: CASE EVENT DATE: 20160526
